FAERS Safety Report 23745894 (Version 5)
Quarter: 2025Q1

REPORT INFORMATION
  Report Type: Spontaneous
  Country: PL (occurrence: PL)
  Receive Date: 20240416
  Receipt Date: 20250312
  Transmission Date: 20250409
  Serious: Yes (Life-Threatening, Hospitalization, Other)
  Sender: AUROBINDO
  Company Number: PL-NOVPHSZ-PHHY2019PL025830

PATIENT
  Age: 76 Year
  Sex: Female

DRUGS (65)
  1. LETROZOLE [Suspect]
     Active Substance: LETROZOLE
     Indication: Invasive ductal breast carcinoma
     Dosage: 2.5 MILLIGRAM, ONCE A DAY
     Route: 065
  2. ADRIAMYCIN [Suspect]
     Active Substance: DOXORUBICIN HYDROCHLORIDE
     Indication: Invasive ductal breast carcinoma
     Route: 065
  3. ADRIAMYCIN [Suspect]
     Active Substance: DOXORUBICIN HYDROCHLORIDE
     Route: 065
     Dates: start: 201503, end: 201508
  4. CAPECITABINE [Suspect]
     Active Substance: CAPECITABINE
     Indication: Breast cancer metastatic
     Dosage: 1500 MILLIGRAM, ONCE A DAY (500 MG, TID (3/DAY) (1500 MG )  )
     Route: 048
     Dates: start: 201707
  5. CAPECITABINE [Suspect]
     Active Substance: CAPECITABINE
     Indication: Metastases to skin
  6. CAPECITABINE [Suspect]
     Active Substance: CAPECITABINE
     Indication: Invasive ductal breast carcinoma
  7. DOCETAXEL [Suspect]
     Active Substance: DOCETAXEL
     Indication: Invasive ductal breast carcinoma
     Route: 065
     Dates: start: 201503
  8. NEUPOGEN [Suspect]
     Active Substance: FILGRASTIM
     Indication: Prophylaxis
     Route: 065
  9. NEUPOGEN [Suspect]
     Active Substance: FILGRASTIM
     Indication: Febrile neutropenia
  10. VINORELBINE [Suspect]
     Active Substance: VINORELBINE TARTRATE
     Indication: Breast cancer metastatic
     Route: 048
     Dates: start: 201707
  11. FEMARA [Suspect]
     Active Substance: LETROZOLE
     Indication: Invasive ductal breast carcinoma
     Dosage: 2.5 MILLIGRAM, ONCE A DAY
     Route: 065
  12. FEMARA [Suspect]
     Active Substance: LETROZOLE
     Indication: HER2 positive breast cancer
     Dosage: 2.5 MILLIGRAM, ONCE A DAY
     Route: 048
     Dates: start: 20190508, end: 20190819
  13. FEMARA [Suspect]
     Active Substance: LETROZOLE
     Dosage: 2.5 MILLIGRAM, ONCE A DAY
     Route: 048
     Dates: start: 20200512, end: 20201022
  14. ONTRUZANT [Suspect]
     Active Substance: TRASTUZUMAB-DTTB
     Indication: HER2 positive breast cancer
     Route: 042
     Dates: start: 20181129, end: 20190516
  15. ONTRUZANT [Suspect]
     Active Substance: TRASTUZUMAB-DTTB
     Route: 042
     Dates: start: 20190613, end: 20190704
  16. ONTRUZANT [Suspect]
     Active Substance: TRASTUZUMAB-DTTB
     Route: 042
     Dates: start: 20201109, end: 20201109
  17. ONTRUZANT [Suspect]
     Active Substance: TRASTUZUMAB-DTTB
     Route: 042
     Dates: start: 20201130, end: 20201221
  18. PERJETA [Suspect]
     Active Substance: PERTUZUMAB
     Indication: HER2 positive breast cancer
     Route: 042
     Dates: start: 20180719, end: 20180719
  19. PERJETA [Suspect]
     Active Substance: PERTUZUMAB
     Route: 042
     Dates: start: 20180809, end: 20190704
  20. TYKERB [Suspect]
     Active Substance: LAPATINIB DITOSYLATE
     Indication: HER2 positive breast cancer
     Route: 048
     Dates: start: 20200326, end: 20200723
  21. TYKERB [Suspect]
     Active Substance: LAPATINIB DITOSYLATE
     Route: 048
     Dates: start: 20200829, end: 20201022
  22. TYKERB [Suspect]
     Active Substance: LAPATINIB DITOSYLATE
     Route: 048
     Dates: start: 20200326, end: 20200723
  23. KADCYLA [Suspect]
     Active Substance: ADO-TRASTUZUMAB EMTANSINE
     Indication: HER2 positive breast cancer
     Route: 042
     Dates: start: 20190829, end: 20190829
  24. KADCYLA [Suspect]
     Active Substance: ADO-TRASTUZUMAB EMTANSINE
     Route: 042
     Dates: start: 20191003, end: 20200213
  25. XELODA [Suspect]
     Active Substance: CAPECITABINE
     Indication: HER2 positive breast cancer
     Route: 048
     Dates: start: 20200512, end: 20200519
  26. XELODA [Suspect]
     Active Substance: CAPECITABINE
     Route: 048
     Dates: start: 20200326, end: 20200430
  27. NAVELBINE [Suspect]
     Active Substance: VINORELBINE TARTRATE
     Indication: Invasive ductal breast carcinoma
     Route: 048
     Dates: start: 201707
  28. NAVELBINE [Suspect]
     Active Substance: VINORELBINE TARTRATE
     Indication: HER2 positive breast cancer
     Route: 048
     Dates: start: 20180719, end: 20181130
  29. NAVELBINE [Suspect]
     Active Substance: VINORELBINE TARTRATE
     Indication: Metastases to skin
     Route: 048
     Dates: start: 20181210, end: 20190206
  30. NAVELBINE [Suspect]
     Active Substance: VINORELBINE TARTRATE
     Route: 048
     Dates: start: 20190613, end: 20190705
  31. AROMASIN [Suspect]
     Active Substance: EXEMESTANE
     Indication: HER2 positive breast cancer
     Route: 048
     Dates: start: 20180719, end: 20190507
  32. HERCEPTIN [Suspect]
     Active Substance: TRASTUZUMAB
     Indication: HER2 positive breast cancer
     Route: 042
     Dates: start: 20180809, end: 20180809
  33. HERCEPTIN [Suspect]
     Active Substance: TRASTUZUMAB
     Route: 042
     Dates: start: 20180719, end: 20180719
  34. HERCEPTIN [Suspect]
     Active Substance: TRASTUZUMAB
     Route: 042
     Dates: start: 20180830, end: 20181105
  35. FILGRASTIM [Suspect]
     Active Substance: FILGRASTIM
     Indication: Febrile neutropenia
     Route: 065
  36. DIMETHINDENE [Concomitant]
     Active Substance: DIMETHINDENE
     Indication: Product used for unknown indication
     Route: 065
  37. HALDOL [Concomitant]
     Active Substance: HALOPERIDOL
     Indication: Product used for unknown indication
     Route: 065
  38. DICLOFENAC [Concomitant]
     Active Substance: DICLOFENAC
     Indication: Product used for unknown indication
     Route: 065
     Dates: start: 20200503, end: 20200520
  39. IMODIUM [Concomitant]
     Active Substance: LOPERAMIDE HYDROCHLORIDE
     Indication: Product used for unknown indication
     Route: 065
     Dates: start: 20180731
  40. KYTRIL [Concomitant]
     Active Substance: GRANISETRON HYDROCHLORIDE
     Indication: Product used for unknown indication
     Route: 065
  41. AZITHROMYCIN [Concomitant]
     Active Substance: AZITHROMYCIN
     Indication: Product used for unknown indication
     Route: 065
  42. DEXAMETHASONE [Concomitant]
     Active Substance: DEXAMETHASONE
     Indication: Product used for unknown indication
     Route: 065
     Dates: start: 20191114
  43. Magnesium succinate [Concomitant]
     Indication: Product used for unknown indication
     Route: 065
     Dates: start: 20190819
  44. DEXAMETHASONE [Concomitant]
     Active Substance: DEXAMETHASONE
     Indication: Product used for unknown indication
     Route: 065
  45. DEXAMETHASONE SODIUM PHOSPHATE [Concomitant]
     Active Substance: DEXAMETHASONE SODIUM PHOSPHATE
     Indication: Product used for unknown indication
     Route: 065
  46. ONDANSETRON HYDROCHLORIDE [Concomitant]
     Active Substance: ONDANSETRON HYDROCHLORIDE
     Indication: Product used for unknown indication
     Route: 065
  47. Dexabene [Concomitant]
     Indication: Product used for unknown indication
     Route: 065
  48. Vertirosan [Concomitant]
     Indication: Product used for unknown indication
     Route: 065
  49. Novalgin [Concomitant]
     Indication: Product used for unknown indication
     Route: 065
     Dates: start: 20180727
  50. TREHALOSE [Concomitant]
     Active Substance: TREHALOSE
     Indication: Product used for unknown indication
     Route: 065
  51. MORPHINE [Concomitant]
     Active Substance: MORPHINE
     Indication: Product used for unknown indication
     Route: 065
  52. XGEVA [Concomitant]
     Active Substance: DENOSUMAB
     Indication: Product used for unknown indication
     Route: 065
     Dates: start: 20181215
  53. SUCRALFATE [Concomitant]
     Active Substance: SUCRALFATE
     Indication: Product used for unknown indication
     Route: 065
     Dates: start: 20200512
  54. AMOXICILLIN\CLAVULANATE POTASSIUM [Concomitant]
     Active Substance: AMOXICILLIN\CLAVULANATE POTASSIUM
     Indication: Product used for unknown indication
     Route: 065
  55. RANITIDINE HYDROCHLORIDE [Concomitant]
     Active Substance: RANITIDINE HYDROCHLORIDE
     Indication: Product used for unknown indication
     Route: 065
  56. KONAKION [Concomitant]
     Active Substance: PHYTONADIONE
     Indication: Product used for unknown indication
     Route: 065
  57. ESOMEPRAZOLE [Concomitant]
     Active Substance: ESOMEPRAZOLE
     Indication: Product used for unknown indication
     Route: 065
     Dates: start: 20200207
  58. ORNITHINE ASPARTATE [Concomitant]
     Active Substance: ORNITHINE ASPARTATE
     Indication: Product used for unknown indication
     Route: 065
  59. ZOFRAN [Concomitant]
     Active Substance: ONDANSETRON HYDROCHLORIDE
     Indication: Product used for unknown indication
     Route: 065
     Dates: start: 20190919
  60. LETROZOLE [Concomitant]
     Active Substance: LETROZOLE
     Indication: Product used for unknown indication
     Route: 065
  61. HYDROMORPHONE HYDROCHLORIDE [Concomitant]
     Active Substance: HYDROMORPHONE HYDROCHLORIDE
     Indication: Product used for unknown indication
     Route: 065
  62. BETAISODONA [Concomitant]
     Active Substance: POVIDONE-IODINE
     Indication: Product used for unknown indication
     Route: 065
  63. PREDNISOLONE [Concomitant]
     Active Substance: PREDNISOLONE
     Indication: Product used for unknown indication
     Route: 065
  64. DEXPANTHENOL\HYALURONATE SODIUM [Concomitant]
     Active Substance: DEXPANTHENOL\HYALURONATE SODIUM
     Indication: Product used for unknown indication
     Route: 065
  65. EUTHYROX [Concomitant]
     Active Substance: LEVOTHYROXINE SODIUM
     Indication: Product used for unknown indication
     Route: 065

REACTIONS (11)
  - Diarrhoea [Unknown]
  - Thrombocytopenic purpura [Unknown]
  - Palmar-plantar erythrodysaesthesia syndrome [Unknown]
  - Nausea [Not Recovered/Not Resolved]
  - Febrile neutropenia [Unknown]
  - Anaemia [Unknown]
  - Vomiting [Not Recovered/Not Resolved]
  - Product use in unapproved indication [Unknown]
  - Off label use [Unknown]
  - Drug ineffective [Unknown]
  - Drug intolerance [Unknown]
